APPROVED DRUG PRODUCT: ESCITALOPRAM OXALATE
Active Ingredient: ESCITALOPRAM OXALATE
Strength: EQ 10MG BASE
Dosage Form/Route: TABLET;ORAL
Application: A090939 | Product #002 | TE Code: AB
Applicant: TORRENT PHARMACEUTICALS LTD
Approved: Sep 11, 2012 | RLD: No | RS: No | Type: RX